FAERS Safety Report 15947190 (Version 2)
Quarter: 2019Q1

REPORT INFORMATION
  Report Type: Spontaneous
  Country: US (occurrence: US)
  Receive Date: 20190211
  Receipt Date: 20190314
  Transmission Date: 20190417
  Serious: No
  Sender: FDA-Public Use
  Company Number: US-PFIZER INC-2019055151

PATIENT
  Age: 76 Year
  Sex: Female

DRUGS (1)
  1. POTASSIUM CHLORIDE. [Suspect]
     Active Substance: POTASSIUM CHLORIDE
     Dosage: UNK

REACTIONS (2)
  - Restless legs syndrome [Unknown]
  - Drug hypersensitivity [Unknown]
